FAERS Safety Report 9887350 (Version 3)
Quarter: 2014Q3

REPORT INFORMATION
  Report Type: Spontaneous
  Country: ES (occurrence: ES)
  Receive Date: 20140211
  Receipt Date: 20140804
  Transmission Date: 20150326
  Serious: Yes (Death)
  Sender: FDA-Public Use
  Company Number: ES-BRISTOL-MYERS SQUIBB COMPANY-20136248

PATIENT
  Age: 60 Year
  Sex: Male

DRUGS (6)
  1. ACFOL [Concomitant]
     Active Substance: FOLIC ACID
     Dosage: 1 DF: 1 UNIT NOS
  2. DEZACOR [Concomitant]
     Active Substance: DEFLAZACORT
  3. ABATACEPT SUBQ INJECTION 125MG/ML [Suspect]
     Active Substance: ABATACEPT
     Route: 058
     Dates: start: 20120711, end: 2014
  4. METHOTREXATE [Concomitant]
     Active Substance: METHOTREXATE
  5. MORPHINE SULFATE/NALTREXONE HYDROCHLORIDE [Concomitant]
     Active Substance: MORPHINE SULFATE\NALTREXONE HYDROCHLORIDE
  6. NATECAL D [Concomitant]
     Active Substance: CALCIUM CARBONATE\CHOLECALCIFEROL
     Dosage: 1 DF: 1 TAB UNIT NOS.

REACTIONS (1)
  - Acute myocardial infarction [Fatal]
